FAERS Safety Report 24890122 (Version 1)
Quarter: 2025Q1

REPORT INFORMATION
  Report Type: Spontaneous
  Country: US (occurrence: None)
  Receive Date: 20250124
  Receipt Date: 20250124
  Transmission Date: 20250409
  Serious: Yes (Other)
  Sender: FDA-CTU
  Company Number: None

PATIENT
  Age: 49 Year
  Sex: Female

DRUGS (1)
  1. SKYRIZI [Suspect]
     Active Substance: RISANKIZUMAB-RZAA
     Dates: start: 20240816, end: 20250124

REACTIONS (3)
  - Rash [None]
  - Sinusitis [None]
  - Therapy change [None]

NARRATIVE: CASE EVENT DATE: 20250124
